APPROVED DRUG PRODUCT: TOPIRAMATE
Active Ingredient: TOPIRAMATE
Strength: 200MG
Dosage Form/Route: CAPSULE, EXTENDED RELEASE;ORAL
Application: A216167 | Product #001
Applicant: ZYDUS PHARMACEUTICALS USA INC
Approved: Feb 9, 2023 | RLD: No | RS: No | Type: DISCN